FAERS Safety Report 8267374-5 (Version None)
Quarter: 2012Q2

REPORT INFORMATION
  Report Type: 
  Country: None (occurrence: None)
  Receive Date: 20120409
  Receipt Date: 20120403
  Transmission Date: 20120825
  Serious: Yes (Hospitalization)
  Sender: FDA-Public Use
  Company Number: PHEH2011US010492

PATIENT
  Sex: Female

DRUGS (6)
  1. PROGESTERONE [Concomitant]
     Dosage: 12.5 MG, BID
     Route: 048
  2. CALCIUM CARBONATE [Concomitant]
     Dosage: UNK UKN, UNK
  3. VITAMIN D [Concomitant]
     Dosage: UNK UKN, UNK
  4. BI-EST [Concomitant]
  5. RECLAST [Suspect]
     Indication: OSTEOPOROSIS
     Dosage: 5 MG (YEARLY)
     Route: 042
     Dates: start: 20110303, end: 20110303
  6. LEVOFLOXACIN [Concomitant]
     Dosage: 750 MG, QD
     Route: 048

REACTIONS (16)
  - ACUTE SINUSITIS [None]
  - INFLUENZA LIKE ILLNESS [None]
  - MALAISE [None]
  - PAIN [None]
  - TRICUSPID VALVE INCOMPETENCE [None]
  - GAIT DISTURBANCE [None]
  - VENTRICULAR EXTRASYSTOLES [None]
  - MITRAL VALVE INCOMPETENCE [None]
  - FATIGUE [None]
  - BLINDNESS [None]
  - SINUS HEADACHE [None]
  - HEADACHE [None]
  - ARTHRALGIA [None]
  - CARDIAC DISORDER [None]
  - MYALGIA [None]
  - VISION BLURRED [None]
